FAERS Safety Report 15812715 (Version 2)
Quarter: 2019Q1

REPORT INFORMATION
  Report Type: Spontaneous
  Country: DE (occurrence: DE)
  Receive Date: 20190111
  Receipt Date: 20190322
  Transmission Date: 20190417
  Serious: Yes (Hospitalization, Other)
  Sender: FDA-Public Use
  Company Number: DE-SA-2019SA003985

PATIENT
  Age: 23 Year
  Sex: Female

DRUGS (2)
  1. LEMTRADA [Suspect]
     Active Substance: ALEMTUZUMAB
     Indication: MULTIPLE SCLEROSIS
     Dosage: 12 MG
     Route: 041
     Dates: start: 20181126, end: 20181128
  2. LEMTRADA [Suspect]
     Active Substance: ALEMTUZUMAB
     Dosage: UNK
     Route: 041
     Dates: start: 201708, end: 201708

REACTIONS (19)
  - Hypotension [Recovered/Resolved]
  - Red cell distribution width decreased [Unknown]
  - Blood lactate dehydrogenase increased [Unknown]
  - Prothrombin time ratio decreased [Unknown]
  - Blood fibrinogen decreased [Unknown]
  - Platelet count decreased [Unknown]
  - Mean cell volume decreased [Unknown]
  - Red blood cell count decreased [Unknown]
  - Syncope [Recovered/Resolved]
  - Haematocrit decreased [Unknown]
  - Protein total decreased [Unknown]
  - Pyrexia [Recovered/Resolved]
  - Cytokine storm [Recovered/Resolved]
  - Blood chloride increased [Unknown]
  - Blood calcium decreased [Unknown]
  - Blood magnesium decreased [Unknown]
  - Blood phosphorus decreased [Unknown]
  - Haemoglobin decreased [Unknown]
  - White blood cell count increased [Unknown]

NARRATIVE: CASE EVENT DATE: 20181126
